FAERS Safety Report 9363685 (Version 1)
Quarter: 2013Q2

REPORT INFORMATION
  Report Type: Spontaneous
  Country: DE (occurrence: DE)
  Receive Date: 20130624
  Receipt Date: 20130624
  Transmission Date: 20140414
  Serious: Yes (Other)
  Sender: FDA-Public Use
  Company Number: DE-B.I. PHARMACEUTICALS,INC./RIDGEFIELD-2013-DE-01662DE

PATIENT
  Age: 79 Year
  Sex: Female
  Weight: 64 kg

DRUGS (8)
  1. PRADAXA [Suspect]
     Indication: ATRIAL FIBRILLATION
     Dosage: 220 MG
     Dates: start: 201111, end: 201304
  2. ASS [Suspect]
     Dosage: 50 MG
  3. LOSARTAN COMP [Concomitant]
     Dosage: 100/25MG
  4. CORIFEO [Concomitant]
     Dosage: 25 MG
  5. METOPROLOL [Concomitant]
     Dosage: 95 MG
  6. SIMVASTATIN [Concomitant]
     Dosage: 20 MG
  7. ADUMBRAN [Concomitant]
  8. L-THYROX [Concomitant]

REACTIONS (4)
  - Ischaemic stroke [Recovered/Resolved]
  - Brain stem stroke [Recovered/Resolved]
  - Dizziness [Recovered/Resolved]
  - Visual impairment [Recovered/Resolved]
